FAERS Safety Report 11544172 (Version 1)
Quarter: 2015Q3

REPORT INFORMATION
  Report Type: Spontaneous
  Country: US (occurrence: None)
  Receive Date: 20150922
  Receipt Date: 20150922
  Transmission Date: 20151125
  Serious: No
  Sender: FDA-Public Use
  Company Number: SOM-4345-AE

PATIENT
  Age: 42 Year
  Sex: Male
  Weight: 63.5 kg

DRUGS (1)
  1. SF [Suspect]
     Active Substance: SODIUM FLUORIDE
     Indication: PRODUCT USED FOR UNKNOWN INDICATION
     Dosage: TOPICAL ON TEETH
     Route: 061
     Dates: start: 201409, end: 20150916

REACTIONS (12)
  - Glossodynia [None]
  - Lip pain [None]
  - Chapped lips [None]
  - Gingival pain [None]
  - Lip swelling [None]
  - Swollen tongue [None]
  - Oropharyngeal pain [None]
  - Pharyngeal oedema [None]
  - Throat irritation [None]
  - Abdominal pain upper [None]
  - Vomiting [None]
  - Nausea [None]

NARRATIVE: CASE EVENT DATE: 20150911
